FAERS Safety Report 5841696-7 (Version None)
Quarter: 2008Q3

REPORT INFORMATION
  Report Type: 
  Country: None (occurrence: None)
  Receive Date: 20080812
  Receipt Date: 20080806
  Transmission Date: 20090109
  Serious: Yes (Other)
  Sender: FDA-Public Use
  Company Number: CZ-ASTRAZENECA-2008AC02123

PATIENT
  Age: 56 Year
  Sex: Female

DRUGS (4)
  1. TAMOXIFEN CITRATE [Suspect]
     Route: 048
     Dates: start: 20070701
  2. ACITRETIN [Interacting]
     Indication: PROPHYLAXIS
     Dates: start: 20071001
  3. ACITRETIN [Interacting]
  4. TRIAMCINOLONE [Concomitant]

REACTIONS (3)
  - DRUG INTERACTION [None]
  - ELECTROCARDIOGRAM QT PROLONGED [None]
  - SINUS BRADYCARDIA [None]
